FAERS Safety Report 21524246 (Version 2)
Quarter: 2025Q1

REPORT INFORMATION
  Report Type: Report from Study
  Country: AR (occurrence: AR)
  Receive Date: 20221029
  Receipt Date: 20250313
  Transmission Date: 20250409
  Serious: Yes (Other)
  Sender: NOVARTIS
  Company Number: AR-NOVARTISPH-NVSC2022AR184506

PATIENT
  Age: 67 Year
  Sex: Female

DRUGS (1)
  1. COSENTYX [Suspect]
     Active Substance: SECUKINUMAB
     Indication: Psoriasis
     Dosage: 300 MG, QMO
     Route: 058
     Dates: start: 20120101

REACTIONS (7)
  - Foot deformity [Unknown]
  - Gait inability [Unknown]
  - Gastrointestinal disorder [Unknown]
  - Skin atrophy [Unknown]
  - Sensitive skin [Unknown]
  - Pain [Unknown]
  - Arthralgia [Unknown]

NARRATIVE: CASE EVENT DATE: 20220701
